FAERS Safety Report 13400601 (Version 2)
Quarter: 2017Q2

REPORT INFORMATION
  Report Type: Spontaneous
  Country: US (occurrence: US)
  Receive Date: 20170404
  Receipt Date: 20170619
  Transmission Date: 20170830
  Serious: No
  Sender: FDA-Public Use
  Company Number: US-009507513-1703USA012113

PATIENT
  Age: 25 Year
  Sex: Female
  Weight: 118.37 kg

DRUGS (1)
  1. NEXPLANON [Suspect]
     Active Substance: ETONOGESTREL
     Indication: CONTRACEPTION
     Dosage: 68 MG, EVERY 3 YEARS
     Route: 059
     Dates: start: 20160504, end: 20170315

REACTIONS (4)
  - Device deployment issue [Recovered/Resolved]
  - Affective disorder [Unknown]
  - Device breakage [Recovered/Resolved]
  - Implant site bruising [Unknown]

NARRATIVE: CASE EVENT DATE: 20160504
